FAERS Safety Report 8125403-3 (Version None)
Quarter: 2012Q1

REPORT INFORMATION
  Report Type: 
  Country: None (occurrence: None)
  Receive Date: 20120209
  Receipt Date: 20120202
  Transmission Date: 20120608
  Serious: Yes (Hospitalization)
  Sender: FDA-Public Use
  Company Number: US-MERCK-1104USA02222

PATIENT
  Age: 80 Year
  Sex: Female

DRUGS (2)
  1. FOSAMAX [Suspect]
     Indication: OSTEOPOROSIS
     Route: 048
     Dates: start: 19970101, end: 20100901
  2. ALENDRONATE SODIUM [Suspect]
     Route: 048
     Dates: start: 20100223, end: 20110307

REACTIONS (9)
  - URINARY RETENTION [None]
  - FEMUR FRACTURE [None]
  - OSTEOPENIA [None]
  - HYPERTENSION [None]
  - ANAEMIA [None]
  - FALL [None]
  - CONSTIPATION [None]
  - ADVERSE EVENT [None]
  - VULVAL HAEMATOMA [None]
